FAERS Safety Report 17129316 (Version 1)
Quarter: 2019Q4

REPORT INFORMATION
  Report Type: Spontaneous
  Country: US (occurrence: US)
  Receive Date: 20191115
  Receipt Date: 20191115
  Transmission Date: 20200122
  Serious: Yes (Other)
  Sender: FDA-Public Use
  Company Number: None

PATIENT
  Age: 73 Year
  Sex: Female
  Weight: 107.95 kg

DRUGS (24)
  1. CLONAZEPAM. [Concomitant]
     Active Substance: CLONAZEPAM
  2. XSTRENGTH TYLENOL [Concomitant]
  3. TOVIAZ [Concomitant]
     Active Substance: FESOTERODINE FUMARATE
  4. MELATONIN [Concomitant]
     Active Substance: MELATONIN
  5. COREG [Concomitant]
     Active Substance: CARVEDILOL
  6. PEPCID [Concomitant]
     Active Substance: FAMOTIDINE
  7. ANORA ELLIPTA INHALER [Concomitant]
  8. GABAPENTIN. [Concomitant]
     Active Substance: GABAPENTIN
  9. ARTHROTEC [Concomitant]
     Active Substance: DICLOFENAC SODIUM\MISOPROSTOL
  10. BELSOMRA [Concomitant]
     Active Substance: SUVOREXANT
  11. PRIMIDONE 50MG TABLET [Suspect]
     Active Substance: PRIMIDONE
     Indication: TREMOR
     Dosage: ?          QUANTITY:30 DF DOSAGE FORM;?
     Route: 048
     Dates: start: 20190921, end: 20190922
  12. ZOCOR [Concomitant]
     Active Substance: SIMVASTATIN
  13. XANAX [Concomitant]
     Active Substance: ALPRAZOLAM
  14. LOW DOSE ASPIRIN [Concomitant]
     Active Substance: ASPIRIN
  15. ALLEGRA [Concomitant]
     Active Substance: FEXOFENADINE HYDROCHLORIDE
  16. FOLIC ACID. [Concomitant]
     Active Substance: FOLIC ACID
  17. MAGOX [Concomitant]
  18. LIDOCAIN PATCHES 6% [Concomitant]
  19. FLUTICASONE PROPIDNATE [Concomitant]
  20. ZETIA [Concomitant]
     Active Substance: EZETIMIBE
  21. LEXAPRO [Concomitant]
     Active Substance: ESCITALOPRAM OXALATE
  22. ADDERALL [Concomitant]
     Active Substance: AMPHETAMINE ASPARTATE\AMPHETAMINE SULFATE\DEXTROAMPHETAMINE SACCHARATE\DEXTROAMPHETAMINE SULFATE
  23. BACLOFIN [Concomitant]
  24. VITAMIN B12 [Concomitant]
     Active Substance: CYANOCOBALAMIN

REACTIONS (4)
  - Fear [None]
  - Feeling abnormal [None]
  - Paraesthesia [None]
  - Photopsia [None]

NARRATIVE: CASE EVENT DATE: 20190922
